FAERS Safety Report 9425354 (Version 1)
Quarter: 2013Q3

REPORT INFORMATION
  Report Type: Spontaneous
  Country: GB (occurrence: GB)
  Receive Date: 20130729
  Receipt Date: 20130729
  Transmission Date: 20140515
  Serious: Yes (Hospitalization)
  Sender: FDA-Public Use
  Company Number: GB-BRISTOL-MYERS SQUIBB COMPANY-19117860

PATIENT
  Age: 58 Year
  Sex: Male
  Weight: 140 kg

DRUGS (1)
  1. APIXABAN [Suspect]
     Indication: SURGICAL PROCEDURE REPEATED
     Dates: start: 20130615, end: 20130620

REACTIONS (5)
  - Pulmonary embolism [Recovered/Resolved]
  - Vomiting projectile [Recovered/Resolved]
  - Dyspnoea [Unknown]
  - Malaise [Unknown]
  - Chest discomfort [Unknown]
